FAERS Safety Report 4894470-2 (Version None)
Quarter: 2006Q1

REPORT INFORMATION
  Report Type: 
  Country: None (occurrence: None)
  Receive Date: 20060127
  Receipt Date: 20051221
  Transmission Date: 20060701
  Serious: Yes (Hospitalization)
  Sender: FDA-Public Use
  Company Number: JP-JNJFOC-20051101269

PATIENT
  Sex: Male
  Weight: 92 kg

DRUGS (10)
  1. RISPERDAL CONSTA [Suspect]
     Indication: SCHIZOPHRENIA
     Route: 030
  2. RISPERIDONE [Concomitant]
     Route: 048
  3. RISPERIDONE [Concomitant]
     Indication: SCHIZOPHRENIA
     Route: 048
  4. AKINETON [Concomitant]
     Route: 048
  5. EURODIN [Concomitant]
     Route: 048
  6. EURODIN [Concomitant]
     Indication: INSOMNIA
     Route: 048
  7. LENDORMIN-D [Concomitant]
     Indication: INSOMNIA
     Route: 048
  8. VEGETAMIN [Concomitant]
     Route: 048
  9. VEGETAMIN [Concomitant]
     Route: 048
  10. VEGETAMIN [Concomitant]
     Indication: SCHIZOPHRENIA
     Route: 048

REACTIONS (4)
  - AGGRESSION [None]
  - HALLUCINATION [None]
  - HALLUCINATION, AUDITORY [None]
  - INSOMNIA [None]
